FAERS Safety Report 10592708 (Version 5)
Quarter: 2014Q4

REPORT INFORMATION
  Report Type: Report from Study
  Country: ZA (occurrence: ZA)
  Receive Date: 20141119
  Receipt Date: 20141222
  Transmission Date: 20150529
  Serious: Yes (Death, Life-Threatening, Hospitalization)
  Sender: FDA-Public Use
  Company Number: ZA-NOVOPROD-427449

PATIENT
  Age: 69 Year
  Sex: Female
  Weight: 62.5 kg

DRUGS (1)
  1. LIRAGLUTIDE FLEXPEN [Suspect]
     Active Substance: LIRAGLUTIDE
     Indication: TYPE 2 DIABETES MELLITUS
     Dosage: 1.8,MG,QD
     Route: 058
     Dates: start: 20120221, end: 20140625

REACTIONS (1)
  - Death [Fatal]

NARRATIVE: CASE EVENT DATE: 20141021
